FAERS Safety Report 21228243 (Version 6)
Quarter: 2025Q2

REPORT INFORMATION
  Report Type: Spontaneous
  Country: GB (occurrence: GB)
  Receive Date: 20220818
  Receipt Date: 20250624
  Transmission Date: 20250717
  Serious: Yes (Hospitalization, Other)
  Sender: VERTEX
  Company Number: GB-VERTEX PHARMACEUTICALS-2022-012027

PATIENT
  Sex: Female

DRUGS (10)
  1. ELEXACAFTOR\IVACAFTOR\TEZACAFTOR [Suspect]
     Active Substance: ELEXACAFTOR\IVACAFTOR\TEZACAFTOR
     Indication: Cystic fibrosis
     Dosage: (75 MG IVA/ 50 MG TEZA/100 MG ELEXA) 2 TABS AM
     Route: 048
     Dates: start: 201911, end: 202112
  2. ELEXACAFTOR\IVACAFTOR\TEZACAFTOR [Suspect]
     Active Substance: ELEXACAFTOR\IVACAFTOR\TEZACAFTOR
     Dosage: (75 MG IVA/ 50 MG TEZA/100 MG ELEXA) 1 TABS AM
     Route: 048
     Dates: end: 20240813
  3. KALYDECO [Suspect]
     Active Substance: IVACAFTOR
     Indication: Cystic fibrosis
     Route: 048
     Dates: start: 201911, end: 202112
  4. KALYDECO [Suspect]
     Active Substance: IVACAFTOR
     Route: 048
     Dates: end: 20240813
  5. PROZAC [Concomitant]
     Active Substance: FLUOXETINE HYDROCHLORIDE
  6. CREON [Concomitant]
     Active Substance: PANCRELIPASE AMYLASE\PANCRELIPASE LIPASE\PANCRELIPASE PROTEASE
  7. FLUCLOXACILLIN [Concomitant]
     Active Substance: FLUCLOXACILLIN
  8. PROMIXIN [Concomitant]
     Dosage: PM, ALTERNATE MONTHS WITH TOBRAMYCIN
     Dates: start: 202205
  9. TOBRAMYCIN [Concomitant]
     Active Substance: TOBRAMYCIN
  10. PULMOZYME [Concomitant]
     Active Substance: DORNASE ALFA

REACTIONS (7)
  - Suicidal ideation [Unknown]
  - Hospitalisation [Unknown]
  - Suicide attempt [Recovering/Resolving]
  - Overdose [Recovering/Resolving]
  - Mental disorder [Recovering/Resolving]
  - Self-destructive behaviour [Recovering/Resolving]
  - Eating disorder [Not Recovered/Not Resolved]
